FAERS Safety Report 7831133-5 (Version None)
Quarter: 2011Q4

REPORT INFORMATION
  Report Type: 
  Country: None (occurrence: None)
  Receive Date: 20111021
  Receipt Date: 20111017
  Transmission Date: 20120403
  Serious: Yes (Death, Hospitalization)
  Sender: FDA-Public Use
  Company Number: CH-PFIZER INC-2011141712

PATIENT
  Age: 13 Year
  Sex: Male
  Weight: 33 kg

DRUGS (4)
  1. LEVOTHYROXINE SODIUM [Concomitant]
     Indication: BLOOD THYROID STIMULATING HORMONE DECREASED
     Dosage: 0.375MG, 1X/DAY
     Route: 048
     Dates: start: 19980825
  2. MAGNESIOCARD [Concomitant]
     Indication: RENAL TUBULAR DISORDER
     Dosage: 7.5 MMOL, 1X/DAY
     Route: 048
     Dates: start: 19960224
  3. SOMATROPIN [Suspect]
     Dosage: 7 MG, WEEKLY
  4. SOMATROPIN [Suspect]
     Indication: HYPOPITUITARISM
     Dosage: 1 MG, 1X/DAY
     Dates: start: 20000119, end: 20050321

REACTIONS (2)
  - NEOPLASM MALIGNANT [None]
  - MALIGNANT MESENCHYMOMA [None]
